FAERS Safety Report 5999737-2 (Version None)
Quarter: 2008Q4

REPORT INFORMATION
  Report Type: 
  Country: None (occurrence: None)
  Receive Date: 20081215
  Receipt Date: 20081203
  Transmission Date: 20090506
  Serious: Yes (Death, Hospitalization)
  Sender: FDA-Public Use
  Company Number: JP-PFIZER INC-2008072322

PATIENT

DRUGS (6)
  1. SUNITINIB MALATE [Suspect]
     Dosage: FREQUENCY: QD
     Route: 048
     Dates: start: 20080815, end: 20080822
  2. TAKEPRON [Concomitant]
     Dosage: OD
     Route: 048
  3. THEOLONG [Concomitant]
     Dosage: UNK
     Route: 048
  4. AZELASTINE HCL [Concomitant]
     Dosage: UNK
     Route: 048
  5. MAGNESIUM OXIDE [Concomitant]
     Dosage: UNK
     Route: 048
  6. OXYCONTIN [Concomitant]
     Dosage: UNK
     Route: 048

REACTIONS (2)
  - CEREBRAL HAEMORRHAGE [None]
  - PANCREATITIS [None]
